FAERS Safety Report 4978549-2 (Version None)
Quarter: 2006Q1

REPORT INFORMATION
  Report Type: 
  Country: None (occurrence: None)
  Receive Date: 20060216
  Receipt Date: 20051115
  Transmission Date: 20060701
  Serious: No
  Sender: FDA-Public Use
  Company Number: TPA2005A01500

PATIENT
  Age: 61 Year
  Sex: Female
  Weight: 54.4316 kg

DRUGS (5)
  1. ROZEREM [Suspect]
     Indication: FIBROMYALGIA
     Dosage: 8 MG, HS, PER ORAL
     Route: 048
     Dates: start: 20051113, end: 20051114
  2. LIPITOR [Concomitant]
  3. PREVACID [Concomitant]
  4. ACTONEL [Concomitant]
  5. DONNATAL [Concomitant]

REACTIONS (1)
  - FEELING ABNORMAL [None]
